FAERS Safety Report 7292987-7 (Version None)
Quarter: 2011Q1

REPORT INFORMATION
  Report Type: 
  Country: None (occurrence: None)
  Receive Date: 20110215
  Receipt Date: 20110207
  Transmission Date: 20110831
  Serious: Yes (Hospitalization)
  Sender: FDA-Public Use
  Company Number: AR-ROCHE-711069

PATIENT
  Sex: Female

DRUGS (3)
  1. BELATACEPT [Suspect]
     Indication: RENAL TRANSPLANT
     Route: 042
     Dates: start: 20070316
  2. MEPREDNISONE [Suspect]
     Indication: RENAL TRANSPLANT
     Route: 065
     Dates: start: 20070318
  3. MYCOPHENOLATE MOFETIL [Suspect]
     Route: 048
     Dates: start: 20070316

REACTIONS (5)
  - URINARY TRACT INFECTION [None]
  - RESPIRATORY DISTRESS [None]
  - UROSEPSIS [None]
  - VAGINAL HAEMORRHAGE [None]
  - HEPATIC FAILURE [None]
